FAERS Safety Report 20751131 (Version 4)
Quarter: 2022Q4

REPORT INFORMATION
  Report Type: Spontaneous
  Country: US (occurrence: US)
  Receive Date: 20220426
  Receipt Date: 20221230
  Transmission Date: 20230112
  Serious: Yes (Hospitalization)
  Sender: FDA-Public Use
  Company Number: US-PFIZER INC-202200277015

PATIENT
  Age: 50 Year
  Sex: Male

DRUGS (1)
  1. INLYTA [Suspect]
     Active Substance: AXITINIB
     Dosage: 1 MG
     Dates: start: 20200201

REACTIONS (5)
  - Infection [Unknown]
  - Blood pressure abnormal [Recovered/Resolved]
  - Fatigue [Unknown]
  - Nausea [Unknown]
  - Arthralgia [Unknown]
